FAERS Safety Report 26102085 (Version 1)
Quarter: 2025Q4

REPORT INFORMATION
  Report Type: Spontaneous
  Country: EU (occurrence: EU)
  Receive Date: 20251128
  Receipt Date: 20251128
  Transmission Date: 20260118
  Serious: Yes (Other)
  Sender: CHEPLAPHARM
  Company Number: None

PATIENT
  Age: 60 Year
  Sex: Female
  Weight: 80 kg

DRUGS (5)
  1. QUETIAPINE [Suspect]
     Active Substance: QUETIAPINE
     Indication: Suicide attempt
     Dosage: 6 TABLETS OF 6 MG SEROQUEL?DAILY DOSE: 36 DOSAGE FORM
     Route: 048
     Dates: start: 20250905, end: 20250905
  2. ZOLPIDEM TARTRATE [Suspect]
     Active Substance: ZOLPIDEM TARTRATE
     Indication: Suicide attempt
     Dosage: 10 TABLETS OF 10 MG LUNATE?DAILY DOSE: 100 DOSAGE FORM
     Route: 048
     Dates: start: 20250905, end: 20250905
  3. NORMABEL [Suspect]
     Active Substance: DIAZEPAM
     Indication: Suicide attempt
     Dosage: 15 TABLETS OF 10 MG NORMABEL ?DAILY DOSE: 150 DOSAGE FORM
     Route: 048
     Dates: start: 20250905, end: 20250905
  4. PANTOPRAZOLE [Suspect]
     Active Substance: PANTOPRAZOLE
     Indication: Suicide attempt
     Dosage: 4 TABLETS OF 5 MG PANTOPRAZOLE?DAILY DOSE: 20 DOSAGE FORM
     Route: 048
     Dates: start: 20250905, end: 20250905
  5. VENLAFAXINE [Suspect]
     Active Substance: VENLAFAXINE HYDROCHLORIDE
     Indication: Suicide attempt
     Dosage: 6 TABLETS OF 150 MG?DAILY DOSE: 900 DOSAGE FORM
     Route: 048
     Dates: start: 20250905, end: 20250905

REACTIONS (3)
  - Suicide attempt [Unknown]
  - Somnolence [Unknown]
  - Intentional overdose [Unknown]

NARRATIVE: CASE EVENT DATE: 20250905
